FAERS Safety Report 16472079 (Version 1)
Quarter: 2019Q2

REPORT INFORMATION
  Report Type: Spontaneous
  Country: TW (occurrence: TW)
  Receive Date: 20190625
  Receipt Date: 20190625
  Transmission Date: 20190711
  Serious: Yes (Hospitalization)
  Sender: FDA-Public Use
  Company Number: TW-STRIDES ARCOLAB LIMITED-2019SP005258

PATIENT
  Age: 26 Year
  Sex: Male

DRUGS (5)
  1. ZOLPIDEM [Suspect]
     Active Substance: ZOLPIDEM\ZOLPIDEM TARTRATE
     Dosage: DOSE TAPERED, UNK
     Route: 065
  2. ZOLPIDEM [Suspect]
     Active Substance: ZOLPIDEM\ZOLPIDEM TARTRATE
     Indication: ADJUSTMENT DISORDER WITH ANXIETY
     Dosage: 10 MG, UNK
     Route: 065
  3. ZOLPIDEM [Suspect]
     Active Substance: ZOLPIDEM\ZOLPIDEM TARTRATE
     Dosage: GRADUALLY INCREASED THE TOTAL DOSE TO 300 MG PER DAY
     Route: 065
  4. ZOLPIDEM [Suspect]
     Active Substance: ZOLPIDEM\ZOLPIDEM TARTRATE
     Indication: SUICIDE ATTEMPT
     Dosage: 200 MG, UNK
     Route: 065
  5. ZOLPIDEM [Suspect]
     Active Substance: ZOLPIDEM\ZOLPIDEM TARTRATE
     Dosage: 40 TABLETS OF 10 MG ZOLPIDEM
     Route: 065

REACTIONS (9)
  - Delirium [Recovered/Resolved]
  - Withdrawal syndrome [Unknown]
  - Agitation [Recovered/Resolved]
  - Suicide attempt [Unknown]
  - Disorientation [Recovered/Resolved]
  - Chest discomfort [Recovered/Resolved]
  - Drug dependence [Unknown]
  - Anxiety [Recovered/Resolved]
  - Sinus tachycardia [Recovered/Resolved]
